FAERS Safety Report 24558269 (Version 2)
Quarter: 2024Q4

REPORT INFORMATION
  Report Type: Spontaneous
  Country: JP (occurrence: JP)
  Receive Date: 20241029
  Receipt Date: 20241217
  Transmission Date: 20250115
  Serious: Yes (Hospitalization)
  Sender: TAKEDA
  Company Number: JP-TAKEDA-2024TJP015528

PATIENT
  Age: 22 Year
  Sex: Male
  Weight: 69.9 kg

DRUGS (1)
  1. ENTYVIO [Suspect]
     Active Substance: VEDOLIZUMAB
     Indication: Colitis ulcerative
     Dosage: 300 MILLIGRAM, Q8WEEKS
     Dates: start: 20240510

REACTIONS (1)
  - Streptococcal infection [Recovered/Resolved]

NARRATIVE: CASE EVENT DATE: 20241016
